FAERS Safety Report 24574704 (Version 1)
Quarter: 2024Q4

REPORT INFORMATION
  Report Type: Spontaneous
  Country: JP (occurrence: JP)
  Receive Date: 20241104
  Receipt Date: 20241104
  Transmission Date: 20250114
  Serious: Yes (Hospitalization)
  Sender: CATALYST PHARMA
  Company Number: JP-CATALYSTPHARMACEUTICALPARTNERS-JP-CATA-24-01246

PATIENT
  Sex: Female

DRUGS (5)
  1. FYCOMPA [Suspect]
     Active Substance: PERAMPANEL
     Indication: Partial seizures
     Dosage: 10 MG DAILY, 1 IN 1 DAY
     Route: 048
     Dates: end: 20240917
  2. FLUCONAZOLE [Interacting]
     Active Substance: FLUCONAZOLE
     Indication: Product used for unknown indication
     Dosage: UNK, UNK
     Route: 048
     Dates: start: 20240815, end: 20240904
  3. NOXAFIL [Suspect]
     Active Substance: POSACONAZOLE
     Indication: Product used for unknown indication
     Dosage: UNK, UNK
     Route: 048
     Dates: start: 20221019, end: 20240814
  4. LAMICTAL [Concomitant]
     Active Substance: LAMOTRIGINE
     Indication: Product used for unknown indication
     Dosage: UNK, UNK
     Route: 065
  5. LEVETIRACETAM [Concomitant]
     Active Substance: LEVETIRACETAM
     Indication: Product used for unknown indication
     Dosage: UNK, UNK
     Route: 065

REACTIONS (11)
  - COVID-19 pneumonia [Recovering/Resolving]
  - Urinary incontinence [Recovering/Resolving]
  - Anticonvulsant drug level increased [Recovered/Resolved]
  - Depressed level of consciousness [Recovering/Resolving]
  - Delirium [Recovering/Resolving]
  - Disorientation [Recovering/Resolving]
  - Agitation [Recovering/Resolving]
  - Aggression [Recovering/Resolving]
  - Fall [Recovering/Resolving]
  - Dizziness [Recovering/Resolving]
  - Drug interaction [Recovering/Resolving]

NARRATIVE: CASE EVENT DATE: 20240815
